FAERS Safety Report 10020994 (Version 4)
Quarter: 2014Q2

REPORT INFORMATION
  Report Type: Spontaneous
  Country: DK (occurrence: None)
  Receive Date: 20140313
  Receipt Date: 20140409
  Transmission Date: 20141212
  Serious: Yes (Death, Life-Threatening, Other)
  Sender: FDA-Public Use
  Company Number: AUR-APL-2014-02604

PATIENT
  Age: 68 Year
  Sex: Male

DRUGS (25)
  1. RAMIPRIL [Suspect]
     Indication: CARDIAC FAILURE
     Dosage: 50 MG (25 MG, 2 IN 1 D), ORAL
     Route: 048
     Dates: start: 20121029, end: 20130125
  2. MAREVAN [Suspect]
     Indication: ATRIAL FIBRILLATION
     Route: 048
     Dates: start: 20120722
  3. SPIRON [Suspect]
     Indication: CARDIAC FAILURE
     Dosage: 25 MG (25 MG, 1 IN 1 D)
     Dates: start: 20120831, end: 20130125
  4. WARFARIN [Suspect]
     Indication: ATRIAL FIBRILLATION
     Dates: start: 20080403
  5. AMARYL (GLIMEPIRIDE) [Concomitant]
  6. ASPIRIN (ACETYLSALICYLIC ACID) [Concomitant]
  7. BURINEX (BUMETANIDE) [Concomitant]
  8. BYETTA (EXENATIDE) [Concomitant]
  9. CARVEDILOL (CARVEDILOL) [Concomitant]
  10. CITALOPRAM ( CITALOPRAM) [Concomitant]
  11. DIMITONE (CARVEDILOL) [Concomitant]
  12. FUROSEMIDE (FUROSEMIDE) [Concomitant]
  13. ISODUR (ISOSORBIDE MONONITRATE) [Concomitant]
  14. LASIX RETARD (FUROSEMIDE) [Concomitant]
  15. METFORMIN (METFORMIN) [Concomitant]
  16. NORVASC (AMLODIPINE BESILATE) [Concomitant]
  17. ODRIK (TRANDOLAPRIL) [Concomitant]
  18. DIGOXIN (DIGOXIN) [Concomitant]
  19. PANTOPRAZOLE (PANTOPRAZOLE) [Concomitant]
  20. SELOZOK (METOPROLOL SUCCINATE) [Concomitant]
  21. SPIRONOCLACTONE (SPIRONOCLACTONE) [Concomitant]
  22. VENLAFAXINE (VENLAFAXINE) [Concomitant]
  23. ZARATOR (ATORVASTATIN) [Concomitant]
  24. ZAROXOLYN (METOLAZONE) [Concomitant]
  25. TRANDOLAPRIL (TRANDOLAPRIL) [Concomitant]

REACTIONS (29)
  - Acute myocardial infarction [None]
  - Prothrombin level increased [None]
  - Coagulation factor VII level increased [None]
  - Coagulation factor V level increased [None]
  - Anaemia [None]
  - Hyperkalaemia [None]
  - Renal failure [None]
  - International normalised ratio increased [None]
  - Cardiac failure [None]
  - Aortic valve stenosis [None]
  - Infected skin ulcer [None]
  - Pulmonary oedema [None]
  - Abdominal pain upper [None]
  - Haematemesis [None]
  - Syncope [None]
  - Hypotension [None]
  - Arteriosclerosis [None]
  - Ventricular tachycardia [None]
  - Hypercholesterolaemia [None]
  - Peripheral arterial occlusive disease [None]
  - Leg amputation [None]
  - Amputation [None]
  - Coagulation factor X level increased [None]
  - Blood test abnormal [None]
  - Endoscopy upper gastrointestinal tract abnormal [None]
  - Weight fluctuation [None]
  - Gastric ulcer [None]
  - Coronary artery occlusion [None]
  - Coronary artery stenosis [None]
